FAERS Safety Report 9390453 (Version 1)
Quarter: 2013Q2

REPORT INFORMATION
  Report Type: Spontaneous
  Country: US (occurrence: None)
  Receive Date: 20130620
  Receipt Date: 20130620
  Transmission Date: 20140414
  Serious: Yes (Other)
  Sender: FDA-Public Use
  Company Number: 38879

PATIENT
  Age: 40 Year
  Sex: Female
  Weight: 60.91 kg

DRUGS (3)
  1. GLASSIA [Suspect]
     Indication: ALPHA-1 ANTI-TRYPSIN DEFICIENCY
     Route: 042
     Dates: start: 201104, end: 201207
  2. DALIRESP [Concomitant]
  3. BIAXIN [Concomitant]

REACTIONS (4)
  - Local swelling [None]
  - Fatigue [None]
  - Migraine [None]
  - Pleurisy [None]
